FAERS Safety Report 4475507-1 (Version None)
Quarter: 2004Q4

REPORT INFORMATION
  Report Type: 
  Country: None (occurrence: None)
  Receive Date: 20041015
  Receipt Date: 20041008
  Transmission Date: 20050328
  Serious: Yes (Hospitalization)
  Sender: FDA-Public Use
  Company Number: CL-MERCK-0410CHL00016

PATIENT
  Age: 41 Year
  Sex: Female

DRUGS (1)
  1. VIOXX [Suspect]
     Indication: BACK PAIN
     Route: 048
     Dates: start: 20040901, end: 20040922

REACTIONS (5)
  - INTERVERTEBRAL DISC PROTRUSION [None]
  - NAUSEA [None]
  - OVERDOSE [None]
  - SWELLING [None]
  - VOMITING [None]
